FAERS Safety Report 4711931-7 (Version None)
Quarter: 2005Q2

REPORT INFORMATION
  Report Type: 
  Country: None (occurrence: None)
  Receive Date: 20050629
  Receipt Date: 20050310
  Transmission Date: 20051028
  Serious: No
  Sender: FDA-Public Use
  Company Number: 05P-163-0293592-00

PATIENT
  Age: 33 Year
  Sex: Female
  Weight: 49.8957 kg

DRUGS (11)
  1. HUMIRA [Suspect]
     Indication: RHEUMATOID ARTHRITIS
     Dosage: 40 MG, 1 IN 2 WK, SUBCUTANEOUS
     Route: 058
     Dates: start: 20050206
  2. METHOTREXATE SODIUM [Concomitant]
  3. PREDNISONE [Concomitant]
  4. HYDROXYCHLOROQUINE PHOSPHATE [Concomitant]
  5. ASCORBIC ACID [Concomitant]
  6. CALCIUM GLUCONATE [Concomitant]
  7. IRON [Concomitant]
  8. MULTI-VITAMINS [Concomitant]
  9. MOMETASONE FUROATE [Concomitant]
  10. ZELNORM [Concomitant]
  11. GLUCOSAMINE W/CHONDROITIN SULFATES [Concomitant]

REACTIONS (4)
  - INJECTION SITE HAEMORRHAGE [None]
  - INJECTION SITE PAIN [None]
  - PARAESTHESIA [None]
  - PERIPHERAL COLDNESS [None]
